FAERS Safety Report 5009219-2 (Version None)
Quarter: 2006Q2

REPORT INFORMATION
  Report Type: 
  Country: None (occurrence: None)
  Receive Date: 20060519
  Receipt Date: 20060510
  Transmission Date: 20061013
  Serious: No
  Sender: FDA-Public Use
  Company Number: 06H-048-0308136-00

PATIENT
  Sex: 0

DRUGS (8)
  1. MORPHINE SULFATE [Suspect]
     Indication: POSTOPERATIVE ANALGESIA
     Dosage: 0.05 MG/KG, ONCE, INTRAVENOUS BOLUS;  0.02 MG/KG/HR, INTRAVENOUS INFUSION
     Route: 040
  2. ATROPINE SULPHATE (ATROPINE SULFATE) [Concomitant]
  3. 6% SEVOFLURANE (SEVOFLURANE) [Concomitant]
  4. 1% ISOFLURANE (ISOFLURANE) [Concomitant]
  5. OXYGEN (OXYGEN) [Concomitant]
  6. ATRACURIUM BESYLATE [Concomitant]
  7. NEOSTIGMINE (NEOSTIGMINE) [Concomitant]
  8. ATROPINE [Concomitant]

REACTIONS (2)
  - HYPOXIA [None]
  - RESPIRATORY DEPRESSION [None]
